FAERS Safety Report 12249653 (Version 6)
Quarter: 2016Q2

REPORT INFORMATION
  Report Type: Spontaneous
  Country: US (occurrence: US)
  Receive Date: 20160408
  Receipt Date: 20160620
  Transmission Date: 20160815
  Serious: No
  Sender: FDA-Public Use
  Company Number: US-PFIZER INC-2016180427

PATIENT
  Age: 66 Year
  Sex: Female
  Weight: 87 kg

DRUGS (6)
  1. SUTENT [Suspect]
     Active Substance: SUNITINIB MALATE
     Dosage: 37.5 MG, DAILY
  2. AMARYL [Concomitant]
     Active Substance: GLIMEPIRIDE
     Dosage: UNK
  3. COZAAR [Concomitant]
     Active Substance: LOSARTAN POTASSIUM
     Dosage: UNK
  4. HYDROCHLOROTHIAZIDE. [Concomitant]
     Active Substance: HYDROCHLOROTHIAZIDE
     Dosage: UNK
  5. WELLBUTRIN [Concomitant]
     Active Substance: BUPROPION HYDROCHLORIDE
     Dosage: UNK
  6. SUTENT [Suspect]
     Active Substance: SUNITINIB MALATE
     Indication: METASTATIC RENAL CELL CARCINOMA
     Dosage: 50 MG, CYCLIC (2 WEEKS ON/1 WEEK OFF)
     Dates: start: 20160303

REACTIONS (9)
  - Fatigue [Unknown]
  - Platelet count decreased [Unknown]
  - Palmar-plantar erythrodysaesthesia syndrome [Unknown]
  - Blister [Unknown]
  - Stomatitis [Unknown]
  - Oral pain [Unknown]
  - Dyspepsia [Unknown]
  - Ageusia [Unknown]
  - Dry mouth [Unknown]

NARRATIVE: CASE EVENT DATE: 2016
